FAERS Safety Report 5627438-9 (Version None)
Quarter: 2008Q1

REPORT INFORMATION
  Report Type: 
  Country: None (occurrence: None)
  Receive Date: 20080214
  Receipt Date: 20080214
  Transmission Date: 20080703
  Serious: No
  Sender: FDA-Public Use
  Company Number: None

PATIENT

DRUGS (1)
  1. ZYPREXA [Suspect]
     Indication: EATING DISORDER
     Dosage: 5-10 MG 1 DAILY PO
     Route: 048
     Dates: start: 20061201, end: 20070601

REACTIONS (1)
  - WEIGHT INCREASED [None]
